FAERS Safety Report 5853347-6 (Version None)
Quarter: 2008Q3

REPORT INFORMATION
  Report Type: 
  Country: None (occurrence: None)
  Receive Date: 20080821
  Receipt Date: 20080811
  Transmission Date: 20090109
  Serious: Yes (Death)
  Sender: FDA-Public Use
  Company Number: KR-PFIZER INC-2007003095

PATIENT
  Sex: Male
  Weight: 62 kg

DRUGS (6)
  1. SU-011,248 [Suspect]
     Indication: METASTATIC RENAL CELL CARCINOMA
     Route: 048
     Dates: start: 20061024, end: 20061222
  2. MAGNESIUM OXIDE [Concomitant]
     Route: 048
     Dates: start: 20061013, end: 20070105
  3. DOMPERIDONE MALEATE [Concomitant]
     Route: 048
     Dates: start: 20061015, end: 20070105
  4. OXYCODONE HCL [Concomitant]
     Route: 048
     Dates: start: 20061013, end: 20070105
  5. BISACODYL [Concomitant]
     Dates: start: 20070103, end: 20070105
  6. PYRIDOXIN [Concomitant]
     Route: 048
     Dates: start: 20061227, end: 20070105

REACTIONS (1)
  - DEATH [None]
